FAERS Safety Report 11345417 (Version 2)
Quarter: 2015Q3

REPORT INFORMATION
  Report Type: Spontaneous
  Country: US (occurrence: US)
  Receive Date: 20150806
  Receipt Date: 20150813
  Transmission Date: 20151125
  Serious: Yes (Other)
  Sender: FDA-Public Use
  Company Number: PHEH2015US014714

PATIENT
  Sex: Female

DRUGS (1)
  1. DIOVAN [Suspect]
     Active Substance: VALSARTAN
     Indication: PRODUCT USED FOR UNKNOWN INDICATION
     Route: 065

REACTIONS (21)
  - Autoimmune disorder [Unknown]
  - Chest pain [Unknown]
  - Pruritus [Unknown]
  - Gait disturbance [Unknown]
  - Myalgia [Unknown]
  - Abasia [Unknown]
  - Sneezing [Unknown]
  - Systemic lupus erythematosus [Unknown]
  - Malaise [Unknown]
  - Abdominal distension [Unknown]
  - Drug ineffective [Unknown]
  - Platelet count decreased [Unknown]
  - Dizziness [Unknown]
  - Movement disorder [Unknown]
  - Weight increased [Unknown]
  - Tachycardia [Unknown]
  - Vision blurred [Unknown]
  - Ocular discomfort [Unknown]
  - Cardiac disorder [Unknown]
  - Reading disorder [Unknown]
  - Hypersensitivity [Unknown]
